FAERS Safety Report 21025091 (Version 1)
Quarter: 2022Q2

REPORT INFORMATION
  Report Type: Report from Study
  Country: DE (occurrence: DE)
  Receive Date: 20220630
  Receipt Date: 20220630
  Transmission Date: 20220720
  Serious: Yes (Death)
  Sender: FDA-Public Use
  Company Number: DE-CELLTRION INC.-2022DE010206

PATIENT

DRUGS (3)
  1. RITUXIMAB [Suspect]
     Active Substance: RITUXIMAB
     Indication: Follicular lymphoma
     Dosage: 650 MG, QD
     Route: 041
     Dates: start: 20200102, end: 20200102
  2. BENDAMUSTINE [Suspect]
     Active Substance: BENDAMUSTINE
     Indication: Follicular lymphoma
     Dosage: 110 MG, QD
     Route: 042
     Dates: start: 20200103, end: 20200103
  3. POLATUZUMAB VEDOTIN [Suspect]
     Active Substance: POLATUZUMAB VEDOTIN
     Indication: Follicular lymphoma
     Dosage: 1.8 MG/KG
     Route: 042
     Dates: start: 20200103, end: 20200103

REACTIONS (3)
  - Disease progression [Fatal]
  - Respiratory tract infection [Unknown]
  - Off label use [Unknown]
